FAERS Safety Report 5940130-6 (Version None)
Quarter: 2008Q4

REPORT INFORMATION
  Report Type: 
  Country: None (occurrence: None)
  Receive Date: 20081104
  Receipt Date: 20080220
  Transmission Date: 20090506
  Serious: No
  Sender: FDA-Public Use
  Company Number: US-BAYER-200810861BCC

PATIENT
  Age: 60 Year
  Sex: Male
  Weight: 82 kg

DRUGS (1)
  1. ALEVE COLD + SINUS CAPLETS [Suspect]
     Indication: NASOPHARYNGITIS
     Dosage: AS USED: 1 DF  UNIT DOSE: 1 DF
     Route: 048
     Dates: start: 20080219

REACTIONS (2)
  - BLISTER [None]
  - URTICARIA [None]
